FAERS Safety Report 20199445 (Version 1)
Quarter: 2021Q4

REPORT INFORMATION
  Report Type: Report from Study
  Country: US (occurrence: US)
  Receive Date: 20211217
  Receipt Date: 20211217
  Transmission Date: 20220303
  Serious: Yes (Hospitalization)
  Sender: FDA-Public Use
  Company Number: US-SAMSUNG BIOEPIS-SB-2021-26786

PATIENT
  Age: 27 Year
  Sex: Female
  Weight: 72.121 kg

DRUGS (4)
  1. RENFLEXIS [Suspect]
     Active Substance: INFLIXIMAB-ABDA
     Indication: Crohn^s disease
     Route: 042
     Dates: start: 201511, end: 202101
  2. REMICADE [Suspect]
     Active Substance: INFLIXIMAB
     Indication: Product used for unknown indication
     Route: 065
     Dates: start: 201511
  3. Vitamin and Minerals tablet [Concomitant]
     Indication: Product used for unknown indication
     Dosage: UNKNOWN, TAKE ONE
     Route: 048
  4. VITAMIN D2 [Concomitant]
     Active Substance: ERGOCALCIFEROL
     Indication: Product used for unknown indication
     Dosage: UNKNOWN, ONE CAPSULE, 50000 UNIT
     Route: 048
     Dates: start: 20200804

REACTIONS (7)
  - Crohn^s disease [Recovering/Resolving]
  - Dyspepsia [Not Recovered/Not Resolved]
  - Antibody test abnormal [Recovered/Resolved]
  - Weight increased [Unknown]
  - Drug level below therapeutic [Recovered/Resolved]
  - Drug ineffective [Unknown]
  - Product use issue [Unknown]

NARRATIVE: CASE EVENT DATE: 20190601
